FAERS Safety Report 14416660 (Version 1)
Quarter: 2018Q1

REPORT INFORMATION
  Report Type: Spontaneous
  Country: US (occurrence: US)
  Receive Date: 20180122
  Receipt Date: 20180122
  Transmission Date: 20180509
  Serious: Yes (Other)
  Sender: FDA-Public Use
  Company Number: US-TESARO INC.-TS50-00078-2018USA

PATIENT
  Sex: Female

DRUGS (2)
  1. ROLAPITANT HYDROCHLORIDE [Suspect]
     Active Substance: ROLAPITANT
     Indication: NAUSEA
     Dosage: 180MG, EVERY TWO WEEKS
     Route: 048
  2. ROLAPITANT HYDROCHLORIDE [Suspect]
     Active Substance: ROLAPITANT
     Indication: VOMITING

REACTIONS (7)
  - Neutropenia [Unknown]
  - Vitamin D deficiency [Unknown]
  - Liver function test abnormal [Unknown]
  - Stomatitis [Unknown]
  - Bone pain [Unknown]
  - Depression [Unknown]
  - Metastases to liver [Unknown]
